FAERS Safety Report 24742637 (Version 1)
Quarter: 2024Q4

REPORT INFORMATION
  Report Type: Spontaneous
  Country: AU (occurrence: AU)
  Receive Date: 20241217
  Receipt Date: 20241217
  Transmission Date: 20250114
  Serious: Yes (Other)
  Sender: GE HEALTHCARE
  Company Number: AU-GE HEALTHCARE-2024CSU014267

PATIENT
  Age: 67 Year
  Sex: Female
  Weight: 46 kg

DRUGS (1)
  1. OMNIPAQUE [Suspect]
     Active Substance: IOHEXOL
     Indication: Computerised tomogram thorax
     Dosage: 30 ML, TOTAL
     Route: 042
     Dates: start: 20241206, end: 20241210

REACTIONS (3)
  - Dysphagia [Recovered/Resolved]
  - Cough [Recovered/Resolved]
  - Throat tightness [Recovered/Resolved]

NARRATIVE: CASE EVENT DATE: 20241206
